FAERS Safety Report 23352273 (Version 3)
Quarter: 2024Q1

REPORT INFORMATION
  Report Type: Spontaneous
  Country: GB (occurrence: GB)
  Receive Date: 20231229
  Receipt Date: 20240214
  Transmission Date: 20240409
  Serious: Yes (Hospitalization, Other)
  Sender: FDA-Public Use
  Company Number: GB-BIOGEN-2023BI01242897

PATIENT
  Age: 47 Year
  Sex: Female

DRUGS (2)
  1. TECFIDERA [Suspect]
     Active Substance: DIMETHYL FUMARATE
     Indication: Product used for unknown indication
     Route: 050
     Dates: start: 202308
  2. SENNA [Concomitant]
     Active Substance: SENNA LEAF\SENNOSIDES\SENNOSIDES A AND B
     Indication: Constipation
     Dosage: WHEN NECESSARY AT NIGHT
     Route: 050

REACTIONS (6)
  - Pulmonary embolism [Unknown]
  - Musculoskeletal chest pain [Unknown]
  - Dyspnoea [Unknown]
  - Fibrin D dimer increased [Unknown]
  - Cough [Recovered/Resolved]
  - Coagulopathy [Unknown]

NARRATIVE: CASE EVENT DATE: 20231115
